FAERS Safety Report 12350580 (Version 1)
Quarter: 2016Q2

REPORT INFORMATION
  Report Type: Spontaneous
  Country: DE (occurrence: DE)
  Receive Date: 20160510
  Receipt Date: 20160510
  Transmission Date: 20160815
  Serious: Yes (Hospitalization)
  Sender: FDA-Public Use
  Company Number: DE-IPSEN BIOPHARMACEUTICALS, INC.-2016-03992

PATIENT
  Sex: Female

DRUGS (1)
  1. DYSPORT [Suspect]
     Active Substance: ABOBOTULINUMTOXINA
     Indication: TORTICOLLIS
     Route: 065
     Dates: start: 20160215, end: 20160215

REACTIONS (3)
  - Stridor [Recovered/Resolved]
  - Dyspnoea [Recovered/Resolved]
  - Vocal cord paresis [Recovered/Resolved]

NARRATIVE: CASE EVENT DATE: 201602
